FAERS Safety Report 7794117-1 (Version None)
Quarter: 2011Q4

REPORT INFORMATION
  Report Type: 
  Country: None (occurrence: None)
  Receive Date: 20111004
  Receipt Date: 20110927
  Transmission Date: 20120403
  Serious: Yes (Hospitalization)
  Sender: FDA-Public Use
  Company Number: SI-JNJFOC-20110912077

PATIENT
  Sex: Female

DRUGS (2)
  1. DOXORUBICIN HCL [Suspect]
     Indication: OVARIAN CANCER
     Route: 042
  2. KYTRIL [Concomitant]
     Route: 065

REACTIONS (5)
  - CHEST PAIN [None]
  - DYSPNOEA [None]
  - ANXIETY [None]
  - FLUSHING [None]
  - BACK PAIN [None]
